FAERS Safety Report 25664229 (Version 1)
Quarter: 2025Q3

REPORT INFORMATION
  Report Type: Report from Study
  Country: US (occurrence: US)
  Receive Date: 20250811
  Receipt Date: 20250811
  Transmission Date: 20251021
  Serious: No
  Sender: SUNOVION
  Company Number: US-SUMITOMO PHARMA SWITZERLAND GMBH-2024SPA003274

PATIENT
  Age: 78 Year
  Sex: Male

DRUGS (19)
  1. ORGOVYX [Suspect]
     Active Substance: RELUGOLIX
     Indication: Prostate cancer
     Dosage: 360 MG, SINGLE
     Route: 048
     Dates: start: 20240610, end: 20240610
  2. ORGOVYX [Suspect]
     Active Substance: RELUGOLIX
     Dosage: 120 MG, QD
     Route: 048
     Dates: start: 20240611
  3. ALBUTEROL SULFATE [Concomitant]
     Active Substance: ALBUTEROL SULFATE
  4. ATORVASTATIN CALCIUM [Concomitant]
     Active Substance: ATORVASTATIN CALCIUM
  5. FENTANYL [Concomitant]
     Active Substance: FENTANYL
  6. FERROUS SULFATE [Concomitant]
     Active Substance: FERROUS SULFATE
  7. FINASTERIDE [Concomitant]
     Active Substance: FINASTERIDE
  8. LASIX [Concomitant]
     Active Substance: FUROSEMIDE
  9. METOPROLOL TARTRATE [Concomitant]
     Active Substance: METOPROLOL TARTRATE
  10. OXYCODONE HYDROCHLORIDE [Concomitant]
     Active Substance: OXYCODONE HYDROCHLORIDE
  11. MAGNESIUM [Concomitant]
     Active Substance: MAGNESIUM
  12. TAMSULOSIN HYDROCHLORIDE [Concomitant]
     Active Substance: TAMSULOSIN HYDROCHLORIDE
  13. TIZANIDINE HYDROCHLORIDE [Concomitant]
     Active Substance: TIZANIDINE HYDROCHLORIDE
  14. TRESIBA [Concomitant]
     Active Substance: INSULIN DEGLUDEC
  15. VENTOLIN HFA [Concomitant]
     Active Substance: ALBUTEROL SULFATE
  16. VITAMIN D [Concomitant]
     Active Substance: VITAMIN D NOS
  17. WIXELA INHUB [Concomitant]
     Active Substance: FLUTICASONE PROPIONATE\SALMETEROL XINAFOATE
  18. ZETIA [Concomitant]
     Active Substance: EZETIMIBE
  19. ZYTIGA [Concomitant]
     Active Substance: ABIRATERONE ACETATE

REACTIONS (3)
  - Abnormal dreams [Unknown]
  - Pruritus [Unknown]
  - Hot flush [Unknown]
